FAERS Safety Report 6184551-8 (Version None)
Quarter: 2009Q2

REPORT INFORMATION
  Report Type: 
  Country: None (occurrence: None)
  Receive Date: 20090508
  Receipt Date: 20090424
  Transmission Date: 20091009
  Serious: Yes (Death, Hospitalization, Other)
  Sender: FDA-Public Use
  Company Number: IT-MERCK-01098137

PATIENT
  Age: 71 Year
  Sex: Male

DRUGS (6)
  1. ZOCOR [Suspect]
     Indication: HYPERCHOLESTEROLAEMIA
     Route: 048
     Dates: start: 19981101, end: 20010712
  2. CYCLOSPORINE [Suspect]
     Indication: HEART TRANSPLANT
     Route: 048
     Dates: start: 19990101
  3. ENALAPRIL MALEATE [Concomitant]
     Indication: HYPERTENSION
     Route: 048
  4. FUROSEMIDE SODIUM [Concomitant]
     Route: 065
  5. ALLOPURINOL [Concomitant]
     Route: 048
  6. LERCANIDIPINE [Concomitant]
     Route: 048

REACTIONS (9)
  - CARDIAC FAILURE [None]
  - DEATH [None]
  - DRUG INTERACTION [None]
  - DYSPEPSIA [None]
  - MYALGIA [None]
  - OSTEOPOROSIS [None]
  - RENAL FAILURE CHRONIC [None]
  - RHABDOMYOLYSIS [None]
  - THORACIC VERTEBRAL FRACTURE [None]
